FAERS Safety Report 18697285 (Version 1)
Quarter: 2021Q1

REPORT INFORMATION
  Report Type: Spontaneous
  Country: JP (occurrence: JP)
  Receive Date: 20210104
  Receipt Date: 20210104
  Transmission Date: 20210419
  Serious: Yes (Hospitalization, Other)
  Sender: FDA-Public Use
  Company Number: JP-PFIZER INC-2020511345

PATIENT
  Age: 73 Year
  Sex: Female

DRUGS (3)
  1. INLYTA [Suspect]
     Active Substance: AXITINIB
     Dosage: 8 MG, DAILY
     Route: 048
     Dates: start: 202009, end: 20201110
  2. BAVENCIO [Concomitant]
     Active Substance: AVELUMAB
     Indication: RENAL CANCER
     Dosage: UNK
     Route: 042
  3. INLYTA [Suspect]
     Active Substance: AXITINIB
     Indication: RENAL CANCER
     Dosage: 12 MG, DAILY
     Route: 048
     Dates: start: 20200815, end: 202009

REACTIONS (6)
  - Decreased appetite [Recovered/Resolved]
  - Adrenal insufficiency [Recovered/Resolved]
  - Diarrhoea [Recovered/Resolved]
  - Dyspepsia [Recovered/Resolved]
  - Hypoglycaemia [Recovered/Resolved]
  - Hypertension [Recovered/Resolved]

NARRATIVE: CASE EVENT DATE: 2020
